FAERS Safety Report 8573990 (Version 6)
Quarter: 2016Q3

REPORT INFORMATION
  Report Type: Spontaneous
  Country: US (occurrence: US)
  Receive Date: 20120522
  Receipt Date: 20160726
  Transmission Date: 20161109
  Serious: Yes (Hospitalization, Disabling, Other)
  Sender: FDA-Public Use
  Company Number: US-009507513-1205USA02891

PATIENT
  Sex: Female

DRUGS (6)
  1. FOSAMAX [Suspect]
     Active Substance: ALENDRONATE SODIUM
     Indication: OSTEOPENIA
  2. ALENDRONATE SODIUM. [Suspect]
     Active Substance: ALENDRONATE SODIUM
     Indication: OSTEOPENIA
     Dosage: 70 MG, QW
     Route: 048
     Dates: start: 20081203, end: 20110707
  3. ONE-A-DAY ESSENTIAL VITAMINS [Concomitant]
     Dosage: ONE TAB QD
     Dates: start: 2000
  4. FOSAMAX [Suspect]
     Active Substance: ALENDRONATE SODIUM
     Indication: BONE LOSS
     Dosage: 70 MG, QW
     Route: 048
     Dates: start: 20040426, end: 200712
  5. ALENDRONATE SODIUM. [Suspect]
     Active Substance: ALENDRONATE SODIUM
     Indication: OSTEOPENIA
     Dosage: 70 MG, QW
     Route: 048
     Dates: start: 20071227, end: 200809
  6. LEVOTHYROXINE SODIUM. [Concomitant]
     Active Substance: LEVOTHYROXINE SODIUM
     Indication: HYPOTHYROIDISM
     Dosage: UNK
     Dates: start: 1979

REACTIONS (28)
  - Hypertonic bladder [Unknown]
  - Fall [Unknown]
  - Spinal column stenosis [Unknown]
  - Glucose tolerance impaired [Unknown]
  - Urinary incontinence [Unknown]
  - Mammoplasty [Unknown]
  - Blood cholesterol increased [Unknown]
  - Depression [Unknown]
  - Femur fracture [Not Recovered/Not Resolved]
  - Pernicious anaemia [Unknown]
  - Anxiety [Unknown]
  - Insomnia [Unknown]
  - Femur fracture [Unknown]
  - Osteoarthritis [Unknown]
  - Osteoporosis [Not Recovered/Not Resolved]
  - Low turnover osteopathy [Not Recovered/Not Resolved]
  - Femur fracture [Not Recovered/Not Resolved]
  - Infection [Unknown]
  - Cataract [Unknown]
  - Irritable bowel syndrome [Unknown]
  - Constipation [Recovered/Resolved]
  - Internal fixation of fracture [Not Recovered/Not Resolved]
  - Hypertension [Unknown]
  - Cataract [Unknown]
  - Bladder prolapse [Unknown]
  - Abdominal pain [Recovered/Resolved]
  - Hiatus hernia [Unknown]
  - Blood pressure decreased [Unknown]

NARRATIVE: CASE EVENT DATE: 2004
